FAERS Safety Report 6745857-4 (Version None)
Quarter: 2010Q2

REPORT INFORMATION
  Report Type: 
  Country: None (occurrence: None)
  Receive Date: 20100528
  Receipt Date: 20100525
  Transmission Date: 20101027
  Serious: Yes (Death, Hospitalization, Other)
  Sender: FDA-Public Use
  Company Number: US-BRISTOL-MYERS SQUIBB COMPANY-15106032

PATIENT
  Age: 60 Year
  Sex: Male
  Weight: 60 kg

DRUGS (5)
  1. TAXOL [Suspect]
     Indication: OESOPHAGEAL CARCINOMA
     Dosage: 31AUG08-08DEC09 HELD ON 15MAR10 DISCONTINUED ON 15MAR2010
     Route: 042
     Dates: start: 20090831, end: 20100314
  2. SUTENT [Suspect]
     Indication: OESOPHAGEAL CARCINOMA
     Dosage: 31AUG09-14MAR10 DISCONTINUED ON 15MAR2010
     Route: 048
     Dates: start: 20090831, end: 20100314
  3. LEVAQUIN [Concomitant]
  4. SENOKOT [Concomitant]
  5. DURAGESIC-100 [Concomitant]

REACTIONS (10)
  - ATRIAL FIBRILLATION [None]
  - ATRIAL FLUTTER [None]
  - DISEASE PROGRESSION [None]
  - DYSPNOEA [None]
  - NON-CARDIAC CHEST PAIN [None]
  - OESOPHAGEAL FISTULA [None]
  - PLEURAL EFFUSION [None]
  - PROCEDURAL COMPLICATION [None]
  - SEPSIS [None]
  - SUPRAVENTRICULAR TACHYCARDIA [None]
